FAERS Safety Report 6438127-5 (Version None)
Quarter: 2009Q4

REPORT INFORMATION
  Report Type: 
  Country: None (occurrence: None)
  Receive Date: 20091109
  Receipt Date: 20091026
  Transmission Date: 20100525
  Serious: Yes (Hospitalization, Other)
  Sender: FDA-Public Use
  Company Number: 001232

PATIENT
  Sex: Male

DRUGS (22)
  1. ROTIGOTINE (ROTIGOTINE) [Suspect]
     Indication: PARKINSON'S DISEASE
     Dosage: SEE IMAGE, TRANSDERMAL
     Route: 062
     Dates: start: 20081110, end: 20081116
  2. ROTIGOTINE (ROTIGOTINE) [Suspect]
     Indication: PARKINSON'S DISEASE
     Dosage: SEE IMAGE, TRANSDERMAL
     Route: 062
     Dates: start: 20081117, end: 20081124
  3. ROTIGOTINE (ROTIGOTINE) [Suspect]
     Indication: PARKINSON'S DISEASE
     Dosage: SEE IMAGE, TRANSDERMAL
     Route: 062
     Dates: start: 20081125, end: 20081130
  4. ROTIGOTINE (ROTIGOTINE) [Suspect]
     Indication: PARKINSON'S DISEASE
     Dosage: SEE IMAGE, TRANSDERMAL
     Route: 062
     Dates: start: 20081201, end: 20081207
  5. ROTIGOTINE (ROTIGOTINE) [Suspect]
     Indication: PARKINSON'S DISEASE
     Dosage: SEE IMAGE, TRANSDERMAL
     Route: 062
     Dates: start: 20081208, end: 20081214
  6. ROTIGOTINE (ROTIGOTINE) [Suspect]
     Indication: PARKINSON'S DISEASE
     Dosage: SEE IMAGE, TRANSDERMAL
     Route: 062
     Dates: start: 20081215, end: 20081221
  7. ROTIGOTINE (ROTIGOTINE) [Suspect]
     Indication: PARKINSON'S DISEASE
     Dosage: SEE IMAGE, TRANSDERMAL
     Route: 062
     Dates: start: 20081222, end: 20081225
  8. ROTIGOTINE (ROTIGOTINE) [Suspect]
     Indication: PARKINSON'S DISEASE
     Dosage: SEE IMAGE, TRANSDERMAL
     Route: 062
     Dates: start: 20081226, end: 20090104
  9. ROTIGOTINE (ROTIGOTINE) [Suspect]
     Indication: PARKINSON'S DISEASE
     Dosage: SEE IMAGE, TRANSDERMAL
     Route: 062
     Dates: start: 20090105, end: 20090112
  10. ROTIGOTINE (ROTIGOTINE) [Suspect]
     Indication: PARKINSON'S DISEASE
     Dosage: SEE IMAGE, TRANSDERMAL
     Route: 062
     Dates: start: 20090113, end: 20090909
  11. CLOTIAZEPAM [Concomitant]
  12. HYDROCORTISONE [Concomitant]
  13. ATORVASTATIN CALCIUM [Concomitant]
  14. ALLOPURINOL [Concomitant]
  15. BROTIZOLAM [Concomitant]
  16. NIFEDIPINE [Concomitant]
  17. VALSARTAN [Concomitant]
  18. MAGNESIUM OXIDE [Concomitant]
  19. PANTOTHENIC ACID [Concomitant]
  20. SENNOSIDE A [Concomitant]
  21. MINOCYCLINE HYDROCHLORIDE [Concomitant]
  22. NADIFLOXACIN [Concomitant]

REACTIONS (9)
  - ASPARTATE AMINOTRANSFERASE INCREASED [None]
  - ASTHMA [None]
  - BLOOD CREATINE PHOSPHOKINASE INCREASED [None]
  - BLOOD LACTATE DEHYDROGENASE INCREASED [None]
  - HYPOKINESIA [None]
  - INFECTION [None]
  - NEUROLEPTIC MALIGNANT SYNDROME [None]
  - SOMNOLENCE [None]
  - WEIGHT INCREASED [None]
